FAERS Safety Report 4751670-X (Version None)
Quarter: 2005Q3

REPORT INFORMATION
  Report Type: 
  Country: None (occurrence: None)
  Receive Date: 20050822
  Receipt Date: 20050812
  Transmission Date: 20060218
  Serious: Yes (Hospitalization)
  Sender: FDA-Public Use
  Company Number: 2005-08-0254

PATIENT
  Age: 67 Year
  Sex: Male
  Weight: 56 kg

DRUGS (8)
  1. PEG-INTRON [Suspect]
     Indication: HEPATITIS B
     Dosage: SEE IMAGE
     Route: 058
     Dates: start: 20040608, end: 20050624
  2. PEG-INTRON [Suspect]
     Indication: HEPATITIS B
     Dosage: SEE IMAGE
     Route: 058
     Dates: start: 20050701, end: 20050701
  3. PEG-INTRON [Suspect]
     Indication: HEPATITIS B
     Dosage: SEE IMAGE
     Route: 058
     Dates: start: 20050608, end: 20050708
  4. PEG-INTRON [Suspect]
     Indication: HEPATITIS B
     Dosage: SEE IMAGE
     Route: 058
     Dates: start: 20050708, end: 20050708
  5. REBETOL [Suspect]
     Indication: HEPATITIS C
     Dosage: 800 MG ORAL
     Route: 048
     Dates: start: 20050608, end: 20050708
  6. AMLODIPINE TABLETS [Concomitant]
  7. ACARBOSE TABLETS [Concomitant]
  8. INSULIN HUMAN INJECTABLE [Concomitant]

REACTIONS (3)
  - CELLULITIS [None]
  - NEUTROPHIL COUNT DECREASED [None]
  - VENOUS THROMBOSIS LIMB [None]
